FAERS Safety Report 25298861 (Version 1)
Quarter: 2025Q2

REPORT INFORMATION
  Report Type: Other
  Country: US (occurrence: US)
  Receive Date: 20250512
  Receipt Date: 20250512
  Transmission Date: 20250716
  Serious: No
  Sender: TIME CAPS
  Company Number: US-Time-Cap Labs, Inc.-2176573

PATIENT
  Age: 62 Year
  Sex: Female

DRUGS (2)
  1. PSYLLIUM HUSK [Suspect]
     Active Substance: PSYLLIUM HUSK
     Indication: Bowel movement irregularity
  2. LISINOPRIL [Concomitant]
     Active Substance: LISINOPRIL

REACTIONS (1)
  - Muscle spasms [Unknown]
